FAERS Safety Report 4361888-6 (Version None)
Quarter: 2004Q2

REPORT INFORMATION
  Report Type: 
  Country: None (occurrence: None)
  Receive Date: 20040521
  Receipt Date: 20040330
  Transmission Date: 20050107
  Serious: No
  Sender: FDA-Public Use
  Company Number: US-GLAXOSMITHKLINE-A0505141A

PATIENT
  Age: 33 Year
  Sex: Female

DRUGS (3)
  1. WELLBUTRIN XL [Suspect]
     Indication: DEPRESSION
     Dosage: 300MG PER DAY
     Route: 048
     Dates: start: 20040309, end: 20040322
  2. MULTIVITAMIN [Concomitant]
  3. WELLBUTRIN SR [Concomitant]
     Indication: DEPRESSION
     Dosage: 150MG PER DAY

REACTIONS (2)
  - LYMPHADENOPATHY [None]
  - THROAT TIGHTNESS [None]
